FAERS Safety Report 5329913-3 (Version None)
Quarter: 2007Q2

REPORT INFORMATION
  Report Type: 
  Country: None (occurrence: None)
  Receive Date: 20070517
  Receipt Date: 20070517
  Transmission Date: 20071010
  Serious: Yes (Hospitalization)
  Sender: FDA-Public Use
  Company Number: None

PATIENT
  Age: 52 Year
  Sex: Male
  Weight: 68.9 kg

DRUGS (3)
  1. CLONIDINE [Suspect]
     Dosage: 0.1MG,TID,BY MOUTH
     Route: 048
     Dates: start: 20070211, end: 20070215
  2. DIVALPROEX SODIUM [Concomitant]
  3. QUETIAPINE FUMARATE [Concomitant]

REACTIONS (3)
  - BRADYCARDIA [None]
  - DIZZINESS [None]
  - HYPERTENSION [None]
